FAERS Safety Report 17640953 (Version 2)
Quarter: 2020Q2

REPORT INFORMATION
  Report Type: Spontaneous
  Country: DE (occurrence: DE)
  Receive Date: 20200408
  Receipt Date: 20200624
  Transmission Date: 20200713
  Serious: Yes (Hospitalization, Other)
  Sender: FDA-Public Use
  Company Number: DE-AUROBINDO-AUR-APL-2020-016926

PATIENT
  Age: 88 Year
  Sex: Female
  Weight: 77 kg

DRUGS (10)
  1. LEVOFLOXACIN. [Suspect]
     Active Substance: LEVOFLOXACIN
     Indication: URINARY TRACT INFECTION
     Dosage: 500 MILLIGRAM
     Route: 048
  2. PREGABALIN. [Concomitant]
     Active Substance: PREGABALIN
     Indication: POLYNEUROPATHY
     Dosage: 75 MILLIGRAM, TWO TIMES A DAY
     Route: 048
  3. LEVOFLOXACIN. [Suspect]
     Active Substance: LEVOFLOXACIN
     Indication: PNEUMONIA
  4. KALINOR [Concomitant]
     Indication: HYPOKALAEMIA
     Dosage: 1 DOSAGE FORM, TWO TIMES A DAY
     Route: 048
  5. HCT [Concomitant]
     Active Substance: HYDROCHLOROTHIAZIDE
     Indication: CARDIAC FAILURE
     Dosage: 12.5 MILLIGRAM, ONCE A DAY (1-0-0)
     Route: 048
  6. FENTANYL. [Concomitant]
     Active Substance: FENTANYL
     Indication: POLYNEUROPATHY
     Dosage: 25 MICROGRAM 3 DAY
     Route: 065
  7. NOVAMINSULFON [Concomitant]
     Active Substance: METAMIZOLE
     Indication: POLYNEUROPATHY
     Dosage: 1 GRAM, FOUR TIMES/DAY
     Route: 048
  8. RAMIPRIL. [Concomitant]
     Active Substance: RAMIPRIL
     Indication: HYPERTENSION
     Dosage: 5 MILLIGRAM, ONCE A DAY (1-0-0)
     Route: 048
  9. METAMIZOLE SODIUM [Concomitant]
     Active Substance: METAMIZOLE SODIUM
     Indication: POLYNEUROPATHY
     Dosage: 1 GRAM, FOUR TIMES/DAY
     Route: 048
  10. TORASEMID [Concomitant]
     Active Substance: TORSEMIDE
     Indication: CARDIAC FAILURE
     Dosage: 10 MILLIGRAM, ONCE A DAY (1-0-0)
     Route: 048

REACTIONS (2)
  - Myoclonus [Not Recovered/Not Resolved]
  - Generalised tonic-clonic seizure [Not Recovered/Not Resolved]

NARRATIVE: CASE EVENT DATE: 20200214
